FAERS Safety Report 24016783 (Version 1)
Quarter: 2024Q2

REPORT INFORMATION
  Report Type: Spontaneous
  Country: US (occurrence: US)
  Receive Date: 20240626
  Receipt Date: 20240626
  Transmission Date: 20240716
  Serious: Yes (Hospitalization)
  Sender: FDA-Public Use
  Company Number: US-ELI_LILLY_AND_COMPANY-US202406013669

PATIENT
  Age: 64 Year
  Sex: Female

DRUGS (4)
  1. TRULICITY [Suspect]
     Active Substance: DULAGLUTIDE
     Indication: Type 2 diabetes mellitus
     Dosage: UNK UNK, UNKNOWN
     Route: 058
     Dates: start: 2023
  2. TRULICITY [Suspect]
     Active Substance: DULAGLUTIDE
     Dosage: 3 MG, UNKNOWN
     Route: 058
     Dates: start: 2023
  3. BASAGLAR [Suspect]
     Active Substance: INSULIN GLARGINE
     Indication: Type 2 diabetes mellitus
     Dosage: 40 U, SINGLE
     Route: 065
     Dates: end: 20231206
  4. METFORMIN [Concomitant]
     Active Substance: METFORMIN HYDROCHLORIDE
     Indication: Diabetes mellitus
     Dosage: 4000 MG, BID

REACTIONS (19)
  - Tooth abscess [Recovered/Resolved]
  - Sepsis [Recovered/Resolved]
  - Loss of consciousness [Recovered/Resolved]
  - Heart rate decreased [Recovered/Resolved]
  - Glycosylated haemoglobin increased [Recovered/Resolved]
  - Sleep disorder due to general medical condition, insomnia type [Recovered/Resolved]
  - Dark circles under eyes [Recovered/Resolved]
  - Pollakiuria [Recovered/Resolved]
  - Taste disorder [Recovered/Resolved]
  - Delirium [Recovered/Resolved]
  - Blood glucose increased [Recovered/Resolved]
  - Gait inability [Recovered/Resolved]
  - Dehydration [Recovered/Resolved]
  - Swelling face [Recovered/Resolved]
  - Dry mouth [Unknown]
  - Thirst [Unknown]
  - Injection site haemorrhage [Unknown]
  - Injection site pain [Recovered/Resolved]
  - Injection site pruritus [Recovered/Resolved]

NARRATIVE: CASE EVENT DATE: 20230831
